FAERS Safety Report 10283879 (Version 2)
Quarter: 2015Q1

REPORT INFORMATION
  Report Type: Report from Study
  Country: JP (occurrence: None)
  Receive Date: 20140703
  Receipt Date: 20150126
  Transmission Date: 20150720
  Serious: Yes (Death, Hospitalization)
  Sender: FDA-Public Use
  Company Number: 2014MPI00772

PATIENT
  Age: 81 Year
  Sex: Female
  Weight: 34 kg

DRUGS (9)
  1. ADCETRIS [Suspect]
     Active Substance: BRENTUXIMAB VEDOTIN
     Indication: HODGKIN^S DISEASE
     Route: 041
     Dates: start: 20140603, end: 20140603
  2. ACETAMINOPHEN. [Concomitant]
     Active Substance: ACETAMINOPHEN
  3. MEROPENEM (MEROPENEM TRIHYDRATE) [Concomitant]
     Active Substance: MEROPENEM
  4. TEICOPLANIN [Concomitant]
     Active Substance: TEICOPLANIN
  5. CORTICOSTEROIDS [Concomitant]
     Active Substance: CORTICOSTEROID NOS
  6. ACICLOVIR (ACICLOVIR SODIUM) [Concomitant]
  7. FLUCONAZOLE. [Concomitant]
     Active Substance: FLUCONAZOLE
  8. ANTIHISTAMINES [Concomitant]
     Active Substance: ANTIHISTAMINES NOS
  9. BAKTAR (SULFAMETHOXAZOLE, TRIMETHOPRIM) TABLET [Concomitant]
     Active Substance: SULFAMETHOXAZOLE\TRIMETHOPRIM

REACTIONS (6)
  - Blood bilirubin increased [None]
  - Anaemia [None]
  - Death [None]
  - Aspartate aminotransferase increased [None]
  - Alanine aminotransferase increased [None]
  - Condition aggravated [None]
